FAERS Safety Report 14918338 (Version 1)
Quarter: 2018Q2

REPORT INFORMATION
  Report Type: Spontaneous
  Country: US (occurrence: US)
  Receive Date: 20180502
  Receipt Date: 20180502
  Transmission Date: 20180711
  Serious: Yes (Hospitalization, Disabling)
  Sender: FDA-Public Use
  Company Number: None

PATIENT
  Age: 67 Year
  Sex: Male
  Weight: 125.55 kg

DRUGS (2)
  1. EMPAGLIFLOZIN [Suspect]
     Active Substance: EMPAGLIFLOZIN
     Indication: TYPE 2 DIABETES MELLITUS
     Route: 048
     Dates: start: 20171129, end: 20180502
  2. EMPAGLIFLOZIN [Suspect]
     Active Substance: EMPAGLIFLOZIN
     Indication: CORONARY ARTERY DISEASE
     Route: 048
     Dates: start: 20171129, end: 20180502

REACTIONS (14)
  - Induration [None]
  - Hyperthermia [None]
  - Ulcer [None]
  - Wound [None]
  - Erythema [None]
  - Tenderness [None]
  - Foot deformity [None]
  - Leukocytosis [None]
  - Purulence [None]
  - Escherichia test positive [None]
  - Toe amputation [None]
  - Hyperkeratosis [None]
  - Cellulitis gangrenous [None]
  - Condition aggravated [None]

NARRATIVE: CASE EVENT DATE: 20180421
